FAERS Safety Report 18533676 (Version 1)
Quarter: 2020Q4

REPORT INFORMATION
  Report Type: Spontaneous
  Country: GB (occurrence: GB)
  Receive Date: 20201123
  Receipt Date: 20201123
  Transmission Date: 20210114
  Serious: Yes (Other)
  Sender: FDA-Public Use
  Company Number: GB-PFIZER INC-2020454220

PATIENT
  Age: 60 Year
  Sex: Male
  Weight: 92.07 kg

DRUGS (3)
  1. OMEPRAZOLE. [Concomitant]
     Active Substance: OMEPRAZOLE
     Dosage: 10 MG
  2. DOXYCYCLINE MONOHYDRATE [Suspect]
     Active Substance: DOXYCYCLINE
     Indication: EAR INFECTION
     Dosage: 200 MG, 1X/DAY, 200MG ON FIRST DAY THEN 100 MG THERE AFTER
     Route: 048
     Dates: start: 20200925, end: 20200925
  3. DOXYCYCLINE MONOHYDRATE [Suspect]
     Active Substance: DOXYCYCLINE
     Dosage: 100 MG, 1X/DAY, 200MG ON FIRST DAY THEN 100 MG THERE AFTER
     Route: 048
     Dates: start: 20200926, end: 20201001

REACTIONS (1)
  - Tinnitus [Not Recovered/Not Resolved]

NARRATIVE: CASE EVENT DATE: 20200927
